FAERS Safety Report 5720753-X (Version None)
Quarter: 2008Q2

REPORT INFORMATION
  Report Type: 
  Country: None (occurrence: None)
  Receive Date: 20080429
  Receipt Date: 20080418
  Transmission Date: 20081010
  Serious: Yes (Other)
  Sender: FDA-Public Use
  Company Number: IE-BRISTOL-MYERS SQUIBB COMPANY-14166078

PATIENT
  Age: 42 Year
  Sex: Male

DRUGS (9)
  1. ENDOXAN [Suspect]
     Indication: NEUROPATHY PERIPHERAL
     Route: 042
     Dates: start: 20070831, end: 20080326
  2. SOLU-MEDRONE [Suspect]
     Indication: NEUROPATHY PERIPHERAL
     Route: 042
     Dates: start: 20070816, end: 20070821
  3. PREDNISOLONE [Suspect]
     Indication: NEUROPATHY PERIPHERAL
     Route: 065
     Dates: start: 20070822, end: 20080327
  4. THIAMINE [Concomitant]
  5. FUROSEMIDE [Concomitant]
  6. CALCICHEW [Concomitant]
  7. ALENDRONATE SODIUM [Concomitant]
  8. ESOMEPRAZOLE [Concomitant]
  9. BACTRIM [Concomitant]

REACTIONS (1)
  - OSTEONECROSIS [None]
